FAERS Safety Report 18272168 (Version 1)
Quarter: 2020Q3

REPORT INFORMATION
  Report Type: Spontaneous
  Country: FR (occurrence: FR)
  Receive Date: 20200916
  Receipt Date: 20200916
  Transmission Date: 20201103
  Serious: Yes (Hospitalization)
  Sender: FDA-Public Use
  Company Number: FR-CADILA HEALTHCARE LIMITED-FR-ZYDUS-021596

PATIENT

DRUGS (16)
  1. VERAPAMIL (CHLORHYDRATE DE) [Concomitant]
     Active Substance: VERAPAMIL HYDROCHLORIDE
  2. ATORVASTATIN [Concomitant]
     Active Substance: ATORVASTATIN
  3. ZOPICLONE [Concomitant]
     Active Substance: ZOPICLONE
  4. TRAMADOL. [Suspect]
     Active Substance: TRAMADOL
     Indication: GAIT DISTURBANCE
     Route: 048
     Dates: end: 20171115
  5. TERCIAN [Suspect]
     Active Substance: CYAMEMAZINE
     Indication: DEPRESSION
     Dosage: 1 DOSAGE FORM,(INTERVAL :1 DAYS)
     Route: 048
     Dates: end: 20171121
  6. KARDEGIC [Concomitant]
     Active Substance: ASPIRIN DL-LYSINE
  7. LIRAGLUTIDE [Concomitant]
     Active Substance: LIRAGLUTIDE
  8. DOLIPRANE [Concomitant]
     Active Substance: ACETAMINOPHEN
  9. ECONAZOLE. [Concomitant]
     Active Substance: ECONAZOLE NITRATE
  10. MIANSERINE [Suspect]
     Active Substance: MIANSERIN HYDROCHLORIDE
     Indication: DEPRESSION
     Dosage: 90 MILLIGRAM,(INTERVAL :1 DAYS)
     Route: 048
     Dates: end: 20171101
  11. METFORMIN [Concomitant]
     Active Substance: METFORMIN HYDROCHLORIDE
  12. INSULINE GLARGINE ((BACTERIE/ESCHERICHIA COLI)) [Concomitant]
     Active Substance: INSULIN GLARGINE
  13. NOVORAPID [Concomitant]
     Active Substance: INSULIN ASPART
  14. PRAZEPAM [Suspect]
     Active Substance: PRAZEPAM
     Indication: DEPRESSION
     Dosage: 30 MILLIGRAM,(INTERVAL :1 DAYS)
     Route: 048
     Dates: end: 20171115
  15. LYRICA [Concomitant]
     Active Substance: PREGABALIN
  16. FUROSEMIDE. [Concomitant]
     Active Substance: FUROSEMIDE

REACTIONS (1)
  - Dysphagia [Recovered/Resolved]

NARRATIVE: CASE EVENT DATE: 20171001
